FAERS Safety Report 25675542 (Version 1)
Quarter: 2025Q3

REPORT INFORMATION
  Report Type: Spontaneous
  Country: US (occurrence: US)
  Receive Date: 20250813
  Receipt Date: 20250813
  Transmission Date: 20251020
  Serious: No
  Sender: BAYER HEALTHCARE PHARMACEUTICALS INC.
  Company Number: US-BAYER-2025A107055

PATIENT
  Sex: Female

DRUGS (3)
  1. MIRENA [Suspect]
     Active Substance: LEVONORGESTREL
     Indication: Intrauterine contraception
     Dosage: 20?G/DAY
     Route: 015
     Dates: start: 202309
  2. MIRENA [Suspect]
     Active Substance: LEVONORGESTREL
     Indication: Uterine polyp
  3. ZEPBOUND [Concomitant]
     Active Substance: TIRZEPATIDE

REACTIONS (1)
  - Abnormal uterine bleeding [None]
